FAERS Safety Report 7681783-4 (Version None)
Quarter: 2011Q3

REPORT INFORMATION
  Report Type: 
  Country: None (occurrence: None)
  Receive Date: 20110812
  Receipt Date: 20110803
  Transmission Date: 20111222
  Serious: Yes (Hospitalization, Other)
  Sender: FDA-Public Use
  Company Number: US-ASTRAZENECA-2010SE34001

PATIENT
  Age: 63 Year
  Sex: Male

DRUGS (2)
  1. PULMICORT [Concomitant]
     Route: 055
  2. NEXIUM [Suspect]
     Route: 048

REACTIONS (7)
  - PELVIC FRACTURE [None]
  - MEDICAL DEVICE REMOVAL [None]
  - MEMORY IMPAIRMENT [None]
  - BRAIN INJURY [None]
  - ACCIDENT [None]
  - AMNESIA [None]
  - HEAD INJURY [None]
